FAERS Safety Report 6387083-7 (Version None)
Quarter: 2009Q4

REPORT INFORMATION
  Report Type: 
  Country: None (occurrence: None)
  Receive Date: 20091002
  Receipt Date: 20090924
  Transmission Date: 20100525
  Serious: Yes (Hospitalization)
  Sender: FDA-Public Use
  Company Number: US-AVENTIS-200918521US

PATIENT
  Age: 35 Year
  Sex: Female
  Weight: 160.57 kg

DRUGS (18)
  1. LANTUS [Suspect]
     Indication: TYPE 2 DIABETES MELLITUS
     Dosage: DOSE: 32 U DURING PRECONCEPTION
     Route: 058
  2. LANTUS [Suspect]
     Dosage: DOSE: 34 U DURING 0 WEEK OF INTRAUTERINE PERIOD
     Route: 058
  3. LANTUS [Suspect]
     Dosage: DOSE: 38 UNITS DURING 14 WEEKS OF INTRAUTERINE PERIOD
     Route: 058
  4. LANTUS [Suspect]
     Dosage: DOSE: 113 U DURING 22 WEEK OF INTRAUTERINE PERIOD
     Route: 058
  5. LANTUS [Suspect]
     Dosage: DOSE: 220 U DURING 29 WEEK OF INTRAUTERINE PERIOD
     Route: 058
  6. LANTUS [Suspect]
     Dosage: DOSE: 247 U DURING 35 WEEK OF INTRAUTERINE PERIOD
     Route: 058
  7. LANTUS [Suspect]
     Dosage: DOSE: 257 U  38 WEEK OF INTRAUTERINE PERIOD
     Route: 058
  8. METFORMIN [Suspect]
     Dosage: DOSE: UNK
  9. ATORVASTATIN [Suspect]
     Dosage: DOSE: UNK
  10. METOPROLOL [Suspect]
     Indication: HYPERTENSION
     Dosage: DOSE: 100 MG DURING PRECONCEPTION , 0 WEEK, 14 WEEK , 35 WEEK AND 38 WEEK OF INTRAUTERINE PERIOD
  11. METOPROLOL [Suspect]
     Dosage: DOSE: 50 MG DURING 22 WEEK AND 29 WEEK OF INTRAUTERINE PERIOD
  12. MONOPRIL [Suspect]
     Indication: HYPERTENSION
     Dosage: DOSE: 80 MG DURING PRECONCEPTION , 0 WEEK AND 14 WEEK
  13. EXENATIDE [Suspect]
     Dosage: DOSE: UNK
  14. ROSIGLITAZONE [Suspect]
     Dosage: DOSE: UNK
  15. ASPIRIN [Suspect]
     Dosage: DOSE: UNK
  16. NITROFURANTOIN [Suspect]
     Indication: URINARY TRACT INFECTION
     Dosage: DOSE: UNK
  17. DILTIAZEM [Concomitant]
     Indication: HYPERTENSION
     Dosage: DOSE: 240 MG DURING 35 WEEK AND 38 WEEK
  18. ANTIBIOTICS [Concomitant]
     Indication: AMNIOTIC CAVITY INFECTION
     Dosage: DOSE: UNK

REACTIONS (3)
  - AMNIOTIC CAVITY INFECTION [None]
  - DRUG EXPOSURE DURING PREGNANCY [None]
  - PRE-ECLAMPSIA [None]
